APPROVED DRUG PRODUCT: ALPRAZOLAM
Active Ingredient: ALPRAZOLAM
Strength: 2MG
Dosage Form/Route: TABLET;ORAL
Application: A074085 | Product #004
Applicant: ANI PHARMACEUTICALS INC
Approved: Feb 26, 1996 | RLD: No | RS: No | Type: DISCN